FAERS Safety Report 4596490-4 (Version None)
Quarter: 2005Q1

REPORT INFORMATION
  Report Type: 
  Country: None (occurrence: None)
  Receive Date: 20050302
  Receipt Date: 20041227
  Transmission Date: 20050727
  Serious: Yes (Hospitalization)
  Sender: FDA-Public Use
  Company Number: FR-SANOFI-SYNTHELABO-A02200403854

PATIENT
  Age: 87 Year
  Sex: Male
  Weight: 70 kg

DRUGS (11)
  1. OMEPRAZOLE [Suspect]
     Indication: DRUG USE FOR UNKNOWN INDICATION
     Route: 048
     Dates: end: 20041203
  2. CALCIPARINE [Suspect]
     Indication: PHLEBITIS
     Route: 058
     Dates: end: 20041201
  3. BRICANYL [Concomitant]
     Dosage: UNK
     Route: 055
  4. IMOVANE [Concomitant]
     Dosage: UNK
     Route: 048
  5. FORLAX [Concomitant]
     Dosage: UNK
     Route: 048
  6. DAFALGAN [Concomitant]
     Route: 048
  7. CHLORAMINOPHENE [Concomitant]
     Route: 048
  8. LASILIX [Concomitant]
     Route: 048
  9. CORTANCYL [Concomitant]
     Route: 048
  10. KAYEXALATE [Suspect]
     Dosage: UNK
     Route: 048
  11. XATRAL [Suspect]
     Dosage: UNK
     Route: 048

REACTIONS (2)
  - RENAL CYST [None]
  - RENAL FAILURE ACUTE [None]
